FAERS Safety Report 9174291 (Version 1)
Quarter: 2013Q1

REPORT INFORMATION
  Report Type: Spontaneous
  Country: US (occurrence: None)
  Receive Date: 20130318
  Receipt Date: 20130318
  Transmission Date: 20140127
  Serious: No
  Sender: FDA-Public Use
  Company Number: None

PATIENT
  Age: 51 Year
  Sex: Female

DRUGS (1)
  1. AVONEX 30MCG BIOGEN [Suspect]
     Dosage: 30MCG QW IM
     Route: 030
     Dates: start: 20091016, end: 20130314

REACTIONS (2)
  - Nausea [None]
  - Fatigue [None]
